FAERS Safety Report 9569172 (Version 1)
Quarter: 2013Q3

REPORT INFORMATION
  Report Type: Spontaneous
  Country: US (occurrence: US)
  Receive Date: 20130930
  Receipt Date: 20130930
  Transmission Date: 20140515
  Serious: No
  Sender: FDA-Public Use
  Company Number: US-AMGEN-USASP2013059014

PATIENT
  Age: 35 Year
  Sex: Female
  Weight: 61.68 kg

DRUGS (10)
  1. ENBREL [Suspect]
     Indication: PRODUCT USED FOR UNKNOWN INDICATION
     Dosage: 50 MG, QWK
     Route: 058
  2. MEDROL                             /00049601/ [Concomitant]
     Dosage: 4 MG, UNK
  3. METHOTREXATE [Concomitant]
     Dosage: 2.5 MG, UNK
  4. ALLEGRA [Concomitant]
     Dosage: 30 MG, UNK
  5. KETOPROFEN [Concomitant]
     Dosage: 50 MG, UNK
  6. NEXIUM                             /01479302/ [Concomitant]
     Dosage: 40 MG, UNK
  7. CELEXA                             /00582602/ [Concomitant]
     Dosage: 10 MG, UNK
  8. ADVIL                              /00044201/ [Concomitant]
     Dosage: 200 MG, UNK
  9. MULTI-VIT [Concomitant]
     Dosage: UNK
  10. MUCINEX [Concomitant]
     Dosage: 1200 MG, UNK

REACTIONS (3)
  - Arthralgia [Unknown]
  - Joint swelling [Unknown]
  - Psoriasis [Unknown]
